FAERS Safety Report 20340149 (Version 1)
Quarter: 2022Q1

REPORT INFORMATION
  Report Type: Report from Study
  Country: CA (occurrence: CA)
  Receive Date: 20220117
  Receipt Date: 20220117
  Transmission Date: 20220423
  Serious: Yes (Hospitalization, Other)
  Sender: FDA-Public Use
  Company Number: CA-BAYER-2022A005353

PATIENT

DRUGS (1)
  1. EYLEA [Suspect]
     Active Substance: AFLIBERCEPT
     Indication: Neovascular age-related macular degeneration
     Dosage: 40 MG/ML, UNK
     Dates: start: 20190916

REACTIONS (3)
  - Parkinson^s disease [Unknown]
  - Hospitalisation [Unknown]
  - Dysphonia [Unknown]
